FAERS Safety Report 21084594 (Version 1)
Quarter: 2022Q3

REPORT INFORMATION
  Report Type: Spontaneous
  Country: US (occurrence: US)
  Receive Date: 20220714
  Receipt Date: 20220714
  Transmission Date: 20221026
  Serious: No
  Sender: FDA-Public Use
  Company Number: US-JAZZ-2022-US-021565

PATIENT
  Sex: Male

DRUGS (3)
  1. EPIDIOLEX [Suspect]
     Active Substance: CANNABIDIOL
     Indication: Lennox-Gastaut syndrome
     Dosage: 0.26 ML BID 7 DAYS, 0.53 ML BID 7 DAYS, 0.8 ML BID 7 DAYS, 1.1 ML BID
     Route: 048
  2. EPIDIOLEX [Suspect]
     Active Substance: CANNABIDIOL
     Indication: Status epilepticus
     Dosage: 0.26 ML BID 7 DAYS, 0.53 ML BID 7 DAYS, 0.8 ML BID 7 DAYS, 1.1 ML BID
     Route: 048
  3. EPIDIOLEX [Suspect]
     Active Substance: CANNABIDIOL
     Dosage: 1.1 MILLILITER EVERY 12 HOURS
     Route: 048

REACTIONS (2)
  - Product dose omission issue [Unknown]
  - Product administration interrupted [Unknown]
